FAERS Safety Report 17346032 (Version 2)
Quarter: 2020Q1

REPORT INFORMATION
  Report Type: Spontaneous
  Country: US (occurrence: US)
  Receive Date: 20200129
  Receipt Date: 20200226
  Transmission Date: 20200409
  Serious: Yes (Hospitalization)
  Sender: FDA-Public Use
  Company Number: US-BIOMARINAP-US-2020-128114

PATIENT
  Age: 5 Year
  Sex: Male
  Weight: 18.7 kg

DRUGS (1)
  1. BRINEURA [Suspect]
     Active Substance: CERLIPONASE ALFA
     Indication: NEURONAL CEROID LIPOFUSCINOSIS
     Dosage: 300 MILLIGRAM, QOW
     Route: 020
     Dates: start: 20190318

REACTIONS (3)
  - Central nervous system infection [Recovered/Resolved]
  - Staphylococcal infection [Recovered/Resolved]
  - Device leakage [Recovered/Resolved]

NARRATIVE: CASE EVENT DATE: 20200120
